APPROVED DRUG PRODUCT: AMPICILLIN AND SULBACTAM
Active Ingredient: AMPICILLIN SODIUM; SULBACTAM SODIUM
Strength: EQ 10GM BASE/VIAL;EQ 5GM BASE/VIAL
Dosage Form/Route: INJECTABLE;INJECTION
Application: A065314 | Product #001 | TE Code: AP
Applicant: ISTITUTO BIOCHIMICO ITALIANO SPA
Approved: Nov 27, 2006 | RLD: No | RS: No | Type: RX